FAERS Safety Report 6436676-7 (Version None)
Quarter: 2009Q4

REPORT INFORMATION
  Report Type: 
  Country: None (occurrence: None)
  Receive Date: 20091111
  Receipt Date: 20091030
  Transmission Date: 20100525
  Serious: Yes (Life-Threatening)
  Sender: FDA-Public Use
  Company Number: FR-PFIZER INC-2009292448

PATIENT
  Age: 48 Year
  Sex: Female

DRUGS (6)
  1. ATARAX [Suspect]
     Indication: ANAESTHESIA PROCEDURE
     Dosage: UNK
     Dates: start: 20090413, end: 20090413
  2. HYPNOVEL [Concomitant]
     Indication: ANAESTHESIA PROCEDURE
     Dosage: UNK
     Dates: start: 20090413, end: 20090413
  3. KETAMINE [Concomitant]
     Indication: ANAESTHESIA PROCEDURE
     Dosage: UNK
     Dates: start: 20090413, end: 20090413
  4. MIVACRON [Concomitant]
     Indication: ANAESTHESIA PROCEDURE
     Dosage: UNK
     Dates: start: 20090413, end: 20090413
  5. DIPRIVAN [Concomitant]
     Indication: ANAESTHESIA PROCEDURE
     Dosage: UNK
     Dates: start: 20090413, end: 20090413
  6. SUFENTANIL CITRATE [Concomitant]
     Indication: ANAESTHESIA PROCEDURE
     Dosage: UNK
     Dates: start: 20090413, end: 20090413

REACTIONS (1)
  - ANAPHYLACTOID REACTION [None]
